FAERS Safety Report 5940709-1 (Version None)
Quarter: 2008Q4

REPORT INFORMATION
  Report Type: 
  Country: None (occurrence: None)
  Receive Date: 20081103
  Receipt Date: 20081103
  Transmission Date: 20090506
  Serious: Yes (Hospitalization, Other)
  Sender: FDA-Public Use
  Company Number: None

PATIENT
  Sex: Female
  Weight: 47.6277 kg

DRUGS (2)
  1. LEVAQUIN [Suspect]
     Indication: SINUS OPERATION
     Dosage: 500 MG 1/DAY ORAL
     Route: 048
     Dates: start: 20081023
  2. LEVAQUIN [Suspect]
     Dosage: IV
     Route: 042
     Dates: start: 20081026

REACTIONS (8)
  - BACK PAIN [None]
  - INSOMNIA [None]
  - MALAISE [None]
  - NECK PAIN [None]
  - PAIN IN EXTREMITY [None]
  - POST PROCEDURAL COMPLICATION [None]
  - PROCEDURAL NAUSEA [None]
  - PROCEDURAL VOMITING [None]
